FAERS Safety Report 24172111 (Version 1)
Quarter: 2024Q3

REPORT INFORMATION
  Report Type: Spontaneous
  Country: US (occurrence: None)
  Receive Date: 20240805
  Receipt Date: 20240805
  Transmission Date: 20241017
  Serious: Yes (Other)
  Sender: Public
  Company Number: None

PATIENT
  Sex: Female

DRUGS (6)
  1. BENLYSTA [Suspect]
     Active Substance: BELIMUMAB
     Indication: Systemic lupus erythematosus
     Route: 058
     Dates: start: 20210622
  2. ALLEGRA ALRG TAB [Concomitant]
  3. ATIVAN [Concomitant]
     Active Substance: LORAZEPAM
  4. TRIAMCINOLON OIN [Concomitant]
  5. V11BRYD [Concomitant]
  6. VIIBRYD [Concomitant]
     Active Substance: VILAZODONE HYDROCHLORIDE

REACTIONS (2)
  - Discomfort [None]
  - Therapy interrupted [None]
